FAERS Safety Report 15242910 (Version 1)
Quarter: 2018Q3

REPORT INFORMATION
  Report Type: Report from Study
  Country: FR (occurrence: FR)
  Receive Date: 20180806
  Receipt Date: 20180806
  Transmission Date: 20181010
  Serious: Yes (Other)
  Sender: FDA-Public Use
  Company Number: FR-ROCHE-2164753

PATIENT

DRUGS (2)
  1. TOCILIZUMAB. [Suspect]
     Active Substance: TOCILIZUMAB
     Indication: POLYCHONDRITIS
     Route: 042
  2. RITUXIMAB. [Suspect]
     Active Substance: RITUXIMAB
     Indication: POLYCHONDRITIS
     Route: 065

REACTIONS (11)
  - Chalazion [Unknown]
  - Bronchitis [Unknown]
  - Ear infection [Unknown]
  - Herpes zoster [Unknown]
  - Neutropenia [Unknown]
  - Lung infection [Unknown]
  - Sepsis [Unknown]
  - Hepatitis [Unknown]
  - Sinusitis [Unknown]
  - Chest pain [Unknown]
  - Paraesthesia [Unknown]
